FAERS Safety Report 19881993 (Version 1)
Quarter: 2021Q3

REPORT INFORMATION
  Report Type: Spontaneous
  Country: RO (occurrence: RO)
  Receive Date: 20210925
  Receipt Date: 20210925
  Transmission Date: 20211014
  Serious: Yes (Other)
  Sender: FDA-Public Use
  Company Number: RO-REGENERON PHARMACEUTICALS, INC.-2021-88283

PATIENT

DRUGS (1)
  1. EYLEA [Suspect]
     Active Substance: AFLIBERCEPT
     Indication: DIABETIC RETINAL OEDEMA
     Dosage: UNK; TOTAL NUMBER OF DOSES UNK; LAST DOSE UNK

REACTIONS (1)
  - Intraocular pressure decreased [Recovered/Resolved]
